FAERS Safety Report 19286592 (Version 1)
Quarter: 2021Q2

REPORT INFORMATION
  Report Type: Spontaneous
  Country: CA (occurrence: CA)
  Receive Date: 20210521
  Receipt Date: 20210521
  Transmission Date: 20210717
  Serious: Yes (Life-Threatening, Other)
  Sender: FDA-Public Use
  Company Number: CA-ASTRAZENECA-2021A451202

PATIENT
  Sex: Female

DRUGS (1)
  1. SEROQUEL [Suspect]
     Active Substance: QUETIAPINE FUMARATE
     Dosage: UNKNOWN
     Route: 048

REACTIONS (13)
  - Abdominal discomfort [Unknown]
  - Micturition urgency [Unknown]
  - Suicide attempt [Unknown]
  - Oropharyngeal pain [Unknown]
  - Depression [Unknown]
  - Suicidal ideation [Unknown]
  - Dizziness [Unknown]
  - Insomnia [Unknown]
  - Dry mouth [Unknown]
  - Vomiting [Unknown]
  - Injury [Unknown]
  - Gait disturbance [Unknown]
  - Nausea [Unknown]
